FAERS Safety Report 6431118-X (Version None)
Quarter: 2009Q4

REPORT INFORMATION
  Report Type: 
  Country: None (occurrence: None)
  Receive Date: 20091106
  Receipt Date: 20091105
  Transmission Date: 20100525
  Serious: Yes (Hospitalization)
  Sender: FDA-Public Use
  Company Number: US-RB-016566-09

PATIENT
  Age: 34 Year
  Sex: Female

DRUGS (1)
  1. SUBOXONE [Suspect]
     Route: 060
     Dates: start: 20090501

REACTIONS (19)
  - AGITATION [None]
  - ANGER [None]
  - BODY TEMPERATURE INCREASED [None]
  - CRYING [None]
  - DRUG WITHDRAWAL SYNDROME [None]
  - DRY MOUTH [None]
  - FEELING ABNORMAL [None]
  - FEELING OF BODY TEMPERATURE CHANGE [None]
  - GASTRIC DISORDER [None]
  - HYPERHIDROSIS [None]
  - INFLUENZA [None]
  - INSOMNIA [None]
  - LIMB INJURY [None]
  - NAUSEA [None]
  - ORAL INFECTION [None]
  - PAIN IN EXTREMITY [None]
  - PYREXIA [None]
  - RESTLESSNESS [None]
  - VOMITING [None]
